FAERS Safety Report 8389873-8 (Version None)
Quarter: 2012Q2

REPORT INFORMATION
  Report Type: 
  Country: None (occurrence: None)
  Receive Date: 20120529
  Receipt Date: 20120516
  Transmission Date: 20120825
  Serious: Yes (Other)
  Sender: FDA-Public Use
  Company Number: US-ACCORD-011840

PATIENT
  Age: 68 Year
  Sex: Male

DRUGS (7)
  1. THYMOGLOBULIN [Concomitant]
     Dosage: DAY 1 - 4 (POST OP)
  2. THYMOGLOBULIN [Concomitant]
     Indication: IMMUNOSUPPRESSION
     Dosage: DAY 0 (POST OP)
  3. SOLU-MEDROL [Concomitant]
     Dosage: DAY 2 (POST OP).
  4. SOLU-MEDROL [Concomitant]
     Indication: IMMUNOSUPPRESSION
     Dosage: DAY 1 (POST OP)
  5. PREDNISONE TAB [Concomitant]
     Indication: IMMUNOSUPPRESSION
     Dosage: DAY 3 (POST OP)
  6. MYCOPHENOLATE MOFETIL [Concomitant]
     Indication: IMMUNOSUPPRESSION
  7. TACROLIMUS [Suspect]
     Indication: IMMUNOSUPPRESSION

REACTIONS (1)
  - THROMBOTIC MICROANGIOPATHY [None]
